FAERS Safety Report 8543569-8 (Version None)
Quarter: 2012Q3

REPORT INFORMATION
  Report Type: 
  Country: None (occurrence: None)
  Receive Date: 20120727
  Receipt Date: 20120719
  Transmission Date: 20120928
  Serious: Yes (Death, Other)
  Sender: FDA-Public Use
  Company Number: JP-GENZYME-THYM-1001106

PATIENT
  Sex: Female
  Weight: 40 kg

DRUGS (18)
  1. CILASTATIN [Concomitant]
     Indication: ANTI-INFECTIVE THERAPY
     Dosage: 500 MG, BID
     Dates: start: 20090526, end: 20090707
  2. ACYCLOVIR [Concomitant]
     Indication: HERPES ZOSTER
     Dosage: 500 MG, QD
     Route: 048
     Dates: start: 20090522, end: 20090709
  3. PRIMAXIN [Concomitant]
     Indication: ANTI-INFECTIVE THERAPY
     Dosage: 500 MG, BID
     Dates: start: 20090526, end: 20090707
  4. INSULIN [Concomitant]
     Indication: PRODUCT USED FOR UNKNOWN INDICATION
     Dosage: UNK
     Route: 065
  5. CYCLOSPORINE [Concomitant]
     Indication: APLASTIC ANAEMIA
     Dosage: 100 MG, BID
     Route: 048
     Dates: start: 20090430, end: 20090709
  6. VANCOMYCIN HYDROCHLORIDE [Concomitant]
     Indication: ANTI-INFECTIVE THERAPY
     Dosage: 0.25 G, BID
     Dates: start: 20090611, end: 20090709
  7. METHYLPREDNISOLONE SODIUM SUCCINATE [Concomitant]
     Indication: PRODUCT USED FOR UNKNOWN INDICATION
     Dosage: UNK
     Route: 065
  8. PLATELETS [Concomitant]
     Indication: PRODUCT USED FOR UNKNOWN INDICATION
     Dosage: UNK
     Route: 065
  9. GLIMEPIRIDE [Concomitant]
     Indication: PRODUCT USED FOR UNKNOWN INDICATION
     Dosage: UNK
     Route: 065
  10. METHYLPREDNISOLONE [Concomitant]
     Indication: ANAPHYLAXIS PROPHYLAXIS
     Dosage: 125 MG, QD
     Dates: start: 20090629, end: 20090703
  11. NEUPOGEN [Concomitant]
     Indication: APLASTIC ANAEMIA
     Dosage: 600 MCG, QD
     Dates: start: 20090501, end: 20090709
  12. VOGLIBOSE [Concomitant]
     Indication: PRODUCT USED FOR UNKNOWN INDICATION
     Dosage: UNK
     Route: 065
  13. RED BLOOD CELLS, CONCENTRATED [Concomitant]
     Indication: PRODUCT USED FOR UNKNOWN INDICATION
     Dosage: UNK
     Route: 065
  14. RANITIDINE HYDROCHLORIDE [Concomitant]
     Indication: PROPHYLAXIS AGAINST GASTROINTESTINAL ULCER
     Dosage: 100 MG, QD
     Dates: start: 20090529, end: 20090709
  15. SULFAMETHOPRIM [Concomitant]
     Indication: PRODUCT USED FOR UNKNOWN INDICATION
     Dosage: UNK
     Route: 065
  16. VALACYCLOVIR HYDROCHLORIDE [Concomitant]
     Indication: PRODUCT USED FOR UNKNOWN INDICATION
     Dosage: UNK
     Route: 065
  17. THYMOGLOBULIN [Suspect]
     Indication: APLASTIC ANAEMIA
     Dosage: 100 MG, QD
     Route: 042
     Dates: start: 20090629, end: 20090703
  18. VORICONAZOLE [Concomitant]
     Indication: ANTI-INFECTIVE THERAPY
     Dosage: 200 MG, BID
     Route: 048
     Dates: start: 20090629, end: 20090709

REACTIONS (4)
  - PNEUMONIA [None]
  - LYMPHOPENIA [None]
  - WHITE BLOOD CELL COUNT DECREASED [None]
  - APLASTIC ANAEMIA [None]
